FAERS Safety Report 9173848 (Version 4)
Quarter: 2013Q2

REPORT INFORMATION
  Report Type: Spontaneous
  Country: JP (occurrence: JP)
  Receive Date: 20130320
  Receipt Date: 20130604
  Transmission Date: 20140414
  Serious: Yes (Hospitalization, Other)
  Sender: FDA-Public Use
  Company Number: JP-BRISTOL-MYERS SQUIBB COMPANY-17482670

PATIENT
  Age: 80 Year
  Sex: Female

DRUGS (11)
  1. AVAPRO [Suspect]
     Indication: HYPERTENSION
     Dosage: STARTED WITH 50MG,INCREASED TO 100 ON 16-FEB-13, 26-FEB, DISCONTINUED
     Route: 048
     Dates: start: 20120605, end: 20130226
  2. AMLODIN [Concomitant]
     Indication: HYPERTENSION
     Route: 048
     Dates: start: 19920108
  3. CARDENALIN [Concomitant]
     Indication: HYPERTENSION
     Route: 048
     Dates: start: 19920108
  4. BAYASPIRIN [Concomitant]
     Indication: MYOCARDIAL INFARCTION
     Route: 048
     Dates: start: 19970919
  5. INNOLET N [Concomitant]
     Indication: DIABETES MELLITUS
     Dosage: 1DF: 30R
     Route: 058
     Dates: start: 19970919
  6. MYSLEE [Concomitant]
     Indication: INSOMNIA
     Route: 048
     Dates: start: 20071126
  7. LASIX [Concomitant]
     Indication: CARDIAC FAILURE
     Route: 048
     Dates: start: 20090509
  8. FERROMIA [Concomitant]
     Indication: ANAEMIA
     Route: 048
     Dates: start: 20090513
  9. URSO [Concomitant]
     Indication: CHOLELITHIASIS
     Route: 048
     Dates: start: 20101119
  10. COSPANON [Concomitant]
     Indication: CHOLELITHIASIS
     Route: 048
     Dates: start: 20101119
  11. DARBEPOETIN ALFA [Concomitant]
     Indication: NEPHROGENIC ANAEMIA
     Route: 058
     Dates: start: 20110127

REACTIONS (3)
  - Blister [Recovered/Resolved]
  - Cardiac failure congestive [Unknown]
  - Blood pressure increased [Unknown]
